FAERS Safety Report 10334627 (Version 3)
Quarter: 2015Q1

REPORT INFORMATION
  Report Type: Spontaneous
  Country: US (occurrence: US)
  Receive Date: 20140723
  Receipt Date: 20150119
  Transmission Date: 20150720
  Serious: No
  Sender: FDA-Public Use
  Company Number: US-UNITED THERAPEUTICS-UNT-2014-001070

PATIENT
  Age: 71 Year
  Sex: Female
  Weight: 118.82 kg

DRUGS (2)
  1. REMODULIN [Suspect]
     Active Substance: TREPROSTINIL
     Indication: PULMONARY ARTERIAL HYPERTENSION
     Dosage: 0.005 ?G/KG/MIN, CONTINUING
     Route: 058
     Dates: start: 20140414
  2. ADCIRCA [Concomitant]
     Active Substance: TADALAFIL
     Indication: PRODUCT USED FOR UNKNOWN INDICATION

REACTIONS (11)
  - Infusion site haemorrhage [Unknown]
  - Rotator cuff syndrome [Unknown]
  - Paraesthesia [Unknown]
  - Infusion site pustule [Unknown]
  - Pain [Unknown]
  - Infusion site infection [Unknown]
  - Infusion site erythema [Unknown]
  - Pain in extremity [Unknown]
  - Musculoskeletal pain [Unknown]
  - Peripheral swelling [Unknown]
  - Weight increased [Unknown]

NARRATIVE: CASE EVENT DATE: 201405
